FAERS Safety Report 5213483-4 (Version None)
Quarter: 2007Q1

REPORT INFORMATION
  Report Type: 
  Country: None (occurrence: None)
  Receive Date: 20070119
  Receipt Date: 20070110
  Transmission Date: 20070707
  Serious: Yes (Other)
  Sender: FDA-Public Use
  Company Number: DE-SANOFI-SYNTHELABO-A01200700410

PATIENT
  Sex: Male
  Weight: 75 kg

DRUGS (1)
  1. ISCOVER [Suspect]
     Indication: ACUTE CORONARY SYNDROME
     Dosage: 600 MG LOADING DOSE FOLLOWED BY 75 MG DAILY
     Route: 048
     Dates: start: 20061205, end: 20070110

REACTIONS (2)
  - AGEUSIA [None]
  - PRESCRIBED OVERDOSE [None]
